FAERS Safety Report 18162186 (Version 1)
Quarter: 2020Q3

REPORT INFORMATION
  Report Type: Spontaneous
  Country: CO (occurrence: CO)
  Receive Date: 20200818
  Receipt Date: 20200818
  Transmission Date: 20201103
  Serious: Yes (Hospitalization, Other)
  Sender: FDA-Public Use
  Company Number: CO-AXELLIA-003308

PATIENT
  Age: 3 Month
  Weight: 3.24 kg

DRUGS (7)
  1. VANCOMYCIN [Suspect]
     Active Substance: VANCOMYCIN
     Indication: ANTIBIOTIC PROPHYLAXIS
  2. CASPOFUNGIN [Concomitant]
     Active Substance: CASPOFUNGIN
     Indication: ANTIFUNGAL TREATMENT
  3. MEROPENEM. [Suspect]
     Active Substance: MEROPENEM
     Indication: ANTIBIOTIC PROPHYLAXIS
  4. SPIRONOLACTONE. [Concomitant]
     Active Substance: SPIRONOLACTONE
  5. FUROSEMIDE. [Concomitant]
     Active Substance: FUROSEMIDE
  6. MILRINONE [Concomitant]
     Active Substance: MILRINONE
     Indication: CARDIAC FAILURE
  7. CAPTOPRIL. [Concomitant]
     Active Substance: CAPTOPRIL

REACTIONS (2)
  - Endocarditis [Recovered/Resolved]
  - Candida infection [Recovered/Resolved]
